FAERS Safety Report 25601525 (Version 1)
Quarter: 2025Q3

REPORT INFORMATION
  Report Type: Spontaneous
  Country: CN (occurrence: CN)
  Receive Date: 20250724
  Receipt Date: 20250724
  Transmission Date: 20251020
  Serious: Yes (Other)
  Sender: BAYER HEALTHCARE PHARMACEUTICALS INC.
  Company Number: CN-BAYER-2025A098510

PATIENT
  Age: 62 Year

DRUGS (1)
  1. KERENDIA [Suspect]
     Active Substance: FINERENONE
     Indication: Renal disorder
     Dosage: 10 MG, QD
     Route: 048
     Dates: start: 20250717, end: 20250718

REACTIONS (4)
  - Blood pressure increased [Recovered/Resolved]
  - Dizziness [None]
  - Product use in unapproved indication [None]
  - Product prescribing issue [None]

NARRATIVE: CASE EVENT DATE: 20250717
